FAERS Safety Report 6757066-3 (Version None)
Quarter: 2010Q2

REPORT INFORMATION
  Report Type: 
  Country: None (occurrence: None)
  Receive Date: 20100604
  Receipt Date: 20100524
  Transmission Date: 20101027
  Serious: Yes (Hospitalization, Other)
  Sender: FDA-Public Use
  Company Number: US-ELI_LILLY_AND_COMPANY-US201004004571

PATIENT
  Sex: Female
  Weight: 50.34 kg

DRUGS (10)
  1. FORTEO [Suspect]
     Indication: OSTEOPOROSIS
     Dosage: 20 UG, DAILY (1/D)
     Dates: start: 20090901
  2. METOPROLOL TARTRATE [Concomitant]
     Indication: HYPERTENSION
     Dosage: 100 MG, 2/D
  3. NORVASC [Concomitant]
     Dosage: 10 MG, DAILY (1/D)
  4. EFFEXOR [Concomitant]
     Dosage: 150 MG, DAILY (1/D)
  5. KLOR-CON [Concomitant]
     Dosage: 20 MEQ, DAILY (1/D)
  6. COREG [Concomitant]
     Dosage: 3.125 MG, 2/D
  7. ZOCOR [Concomitant]
     Dosage: 20 MG, EACH EVENING
  8. LOVAZA [Concomitant]
     Dosage: 1000 MG, DAILY (1/D)
  9. NIACIN [Concomitant]
     Dosage: 500 MG, EACH EVENING
  10. PRINZIDE [Concomitant]
     Dosage: UNK, DAILY (1/D)

REACTIONS (3)
  - DIPLOPIA [None]
  - HAEMORRHAGIC STROKE [None]
  - VISUAL FIELD DEFECT [None]
